FAERS Safety Report 21015062 (Version 5)
Quarter: 2023Q2

REPORT INFORMATION
  Report Type: Spontaneous
  Country: JP (occurrence: JP)
  Receive Date: 20220628
  Receipt Date: 20230605
  Transmission Date: 20230721
  Serious: Yes (Hospitalization, Other)
  Sender: FDA-Public Use
  Company Number: JP-ABBVIE-22K-087-4419196-00

PATIENT
  Age: 71 Year
  Sex: Male

DRUGS (2)
  1. CARBIDOPA\LEVODOPA [Suspect]
     Active Substance: CARBIDOPA\LEVODOPA
     Indication: Parkinson^s disease
     Route: 050
  2. CARBIDOPA\LEVODOPA [Suspect]
     Active Substance: CARBIDOPA\LEVODOPA

REACTIONS (7)
  - Embedded device [Unknown]
  - Speech disorder [Unknown]
  - Wrong technique in product usage process [Unknown]
  - Complication associated with device [Recovering/Resolving]
  - Abdominal wound dehiscence [Recovering/Resolving]
  - Stoma site extravasation [Recovered/Resolved]
  - Splenic abscess [Recovering/Resolving]

NARRATIVE: CASE EVENT DATE: 20220527
